FAERS Safety Report 12558368 (Version 3)
Quarter: 2016Q3

REPORT INFORMATION
  Report Type: Spontaneous
  Country: HU (occurrence: HU)
  Receive Date: 20160714
  Receipt Date: 20160912
  Transmission Date: 20161109
  Serious: Yes (Hospitalization, Other)
  Sender: FDA-Public Use
  Company Number: HU-TAKEDA-2016MPI005758

PATIENT
  Age: 66 Year
  Sex: Male
  Weight: 68 kg

DRUGS (25)
  1. PERINDOPRIL [Concomitant]
     Active Substance: PERINDOPRIL
     Indication: HYPERTENSION
     Dosage: 4 MG, BID
     Route: 048
     Dates: start: 20130101
  2. NOCLAUD [Concomitant]
     Indication: ARTERIOSCLEROSIS
     Dosage: 100 MG, BID
     Route: 048
     Dates: start: 20130101
  3. ACICLOVIR [Concomitant]
     Active Substance: ACYCLOVIR
     Indication: PROPHYLAXIS
     Dosage: 200 MG, BID
     Route: 048
     Dates: start: 20160503
  4. ERYTHROPOIETIN [Concomitant]
     Active Substance: ERYTHROPOIETIN
     Indication: ANAEMIA
     Dosage: UNK, 1/WEEK
     Route: 058
     Dates: start: 20160503
  5. ZARZIO [Concomitant]
     Active Substance: FILGRASTIM
     Indication: NEUTROPENIA
     Dosage: UNK
     Route: 058
     Dates: start: 20160524, end: 20160531
  6. LEVOFLOXACIN. [Concomitant]
     Active Substance: LEVOFLOXACIN
     Indication: INFECTION PROPHYLAXIS
     Dosage: 500 MG, QD
     Route: 065
     Dates: start: 20160524, end: 20160607
  7. CALCICARB [Concomitant]
     Dosage: UNK, BID
     Route: 048
  8. MELPHALAN [Suspect]
     Active Substance: MELPHALAN
     Indication: PLASMA CELL MYELOMA
     Dosage: 16 MG, UNK
     Route: 048
     Dates: start: 20160510, end: 20160513
  9. VITAMIN D                          /00107901/ [Concomitant]
     Active Substance: ERGOCALCIFEROL
     Indication: OSTEOPOROSIS
     Dosage: 1000 ?G, QD
     Route: 048
     Dates: start: 20160503
  10. ZOLEDRONATE [Concomitant]
     Active Substance: ZOLEDRONIC ACID
     Indication: OSTEOPOROSIS
     Dosage: 4 MG, Q4WEEKS
     Route: 042
     Dates: start: 20160502
  11. VELCADE [Suspect]
     Active Substance: BORTEZOMIB
     Indication: PLASMA CELL MYELOMA
     Dosage: 2.3 MG, UNK
     Route: 058
     Dates: start: 20160510, end: 20160610
  12. VELCADE [Suspect]
     Active Substance: BORTEZOMIB
     Dosage: 2.3 MG, UNK
     Route: 058
     Dates: start: 20160628
  13. PREDNISONE. [Suspect]
     Active Substance: PREDNISONE
     Indication: PLASMA CELL MYELOMA
     Dosage: 110 MG, UNK
     Route: 048
     Dates: start: 20160510, end: 20160513
  14. MELPHALAN [Suspect]
     Active Substance: MELPHALAN
     Dosage: UNK
     Route: 048
     Dates: start: 20160628, end: 20160701
  15. CARVEDIOL [Concomitant]
     Active Substance: CARVEDILOL
     Indication: HYPERTENSION
     Dosage: 6.25 MG, BID
     Route: 048
     Dates: start: 20130101
  16. CALCIUM [Concomitant]
     Active Substance: CALCIUM
     Indication: OSTEOPOROSIS
     Dosage: 700 MG, BID
     Route: 048
     Dates: start: 20160503
  17. AMLODIPINE [Concomitant]
     Active Substance: AMLODIPINE BESYLATE
     Indication: HYPERTENSION
     Dosage: 5 MG, QD
     Route: 048
     Dates: start: 20130101
  18. ASPIRIN                            /00002701/ [Concomitant]
     Active Substance: ASPIRIN
     Indication: ARTERIOSCLEROSIS
     Dosage: 100 MG, QD
     Route: 048
     Dates: start: 20130101
  19. EPOETIN ALFA [Concomitant]
     Active Substance: ERYTHROPOIETIN
     Dosage: UNK, 1/WEEK
     Route: 058
  20. CHLOROPYRAMINE [Concomitant]
     Active Substance: CHLOROPYRAMINE
     Indication: RASH
     Dosage: 20 MG, QD
     Route: 048
     Dates: start: 20160524, end: 20160530
  21. TRAMADOL. [Concomitant]
     Active Substance: TRAMADOL
     Indication: BACK PAIN
     Dosage: 50 MG, BID
     Route: 048
     Dates: start: 20160427, end: 20160531
  22. LAEVOLAC [Concomitant]
     Active Substance: LACTULOSE
     Indication: CONSTIPATION
     Dosage: 10 ML, QD
     Route: 048
     Dates: start: 20160524, end: 20160531
  23. PREDNISONE. [Suspect]
     Active Substance: PREDNISONE
     Dosage: 110 MG, UNK
     Route: 048
     Dates: start: 20160628, end: 20160701
  24. PANTOPRAZOLE [Concomitant]
     Active Substance: PANTOPRAZOLE SODIUM
     Indication: HYPERCHLORHYDRIA
     Dosage: 20 MG, QD
     Route: 048
     Dates: start: 20160429
  25. AMOXICILLIN. [Concomitant]
     Active Substance: AMOXICILLIN
     Indication: INFECTION PROPHYLAXIS
     Dosage: 750 MG, BID
     Route: 048
     Dates: start: 20160503, end: 20160524

REACTIONS (12)
  - Constipation [Unknown]
  - Hydrothorax [Unknown]
  - Rash [Unknown]
  - Anaemia [Unknown]
  - Pyrexia [Unknown]
  - Neutropenia [Unknown]
  - Device related infection [Unknown]
  - Acute kidney injury [Not Recovered/Not Resolved]
  - Plasma cell myeloma [Unknown]
  - Hypervolaemia [Recovered/Resolved]
  - Gastroenteritis [Recovered/Resolved with Sequelae]
  - Pleural effusion [Unknown]

NARRATIVE: CASE EVENT DATE: 20160520
